FAERS Safety Report 5022609-7 (Version None)
Quarter: 2006Q2

REPORT INFORMATION
  Report Type: 
  Country: None (occurrence: None)
  Receive Date: 20060605
  Receipt Date: 20060523
  Transmission Date: 20061013
  Serious: Yes (Other)
  Sender: FDA-Public Use
  Company Number: 2006067216

PATIENT
  Age: 79 Year
  Sex: Male

DRUGS (6)
  1. CABERGOLINE [Suspect]
     Indication: ILL-DEFINED DISORDER
     Dosage: ORAL
     Route: 048
  2. COVERSYL (PERINDOPRIL) [Concomitant]
  3. OLMETEC (OLMESARTAN) [Concomitant]
  4. LEVODOPA-CARBIDOPA (CARBIDOPA, LEVODOPA) [Concomitant]
  5. SYMMETREL [Concomitant]
  6. NIVADIL (NILVADIPINE) [Concomitant]

REACTIONS (3)
  - INTERSTITIAL LUNG DISEASE [None]
  - PLEURAL EFFUSION [None]
  - PULMONARY FIBROSIS [None]
